FAERS Safety Report 16292584 (Version 1)
Quarter: 2019Q2

REPORT INFORMATION
  Report Type: Other
  Country: US (occurrence: US)
  Receive Date: 20190509
  Receipt Date: 20190509
  Transmission Date: 20190711
  Serious: No
  Sender: FDA-Public Use
  Company Number: US-ALKERMES INC.-ALK-2018-003316

PATIENT
  Age: 32 Year
  Sex: Male
  Weight: 84.35 kg

DRUGS (1)
  1. VIVITROL [Suspect]
     Active Substance: NALTREXONE
     Indication: ALCOHOLISM
     Dosage: 380 MG, QMO
     Route: 030
     Dates: start: 20170925

REACTIONS (6)
  - Asthenia [Unknown]
  - Lack of administration site rotation [Unknown]
  - Malaise [Unknown]
  - Intentional product misuse [Unknown]
  - Dehydration [Unknown]
  - Pruritus [Unknown]

NARRATIVE: CASE EVENT DATE: 2017
